FAERS Safety Report 6029387-3 (Version None)
Quarter: 2009Q1

REPORT INFORMATION
  Report Type: 
  Country: None (occurrence: None)
  Receive Date: 20090105
  Receipt Date: 20081225
  Transmission Date: 20090719
  Serious: Yes (Death)
  Sender: FDA-Public Use
  Company Number: 2007SP002020

PATIENT
  Age: 65 Year
  Sex: Female
  Weight: 55 kg

DRUGS (11)
  1. TEMODAL [Suspect]
     Indication: GLIOBLASTOMA MULTIFORME
     Dosage: 75 MG/M2; QD; PO, 150 MG/M2; QD; PO
     Route: 048
     Dates: start: 20061023, end: 20061203
  2. TEMODAL [Suspect]
     Indication: GLIOBLASTOMA MULTIFORME
     Dosage: 75 MG/M2; QD; PO, 150 MG/M2; QD; PO
     Route: 048
     Dates: start: 20070106, end: 20070110
  3. DECADRON [Suspect]
     Indication: GLIOBLASTOMA MULTIFORME
     Dosage: ; INDRP, ; PO,
     Dates: start: 20061103, end: 20061115
  4. DECADRON [Suspect]
     Indication: GLIOBLASTOMA MULTIFORME
     Dosage: ; INDRP, ; PO,
     Dates: start: 20061116, end: 20070118
  5. DECADRON [Suspect]
     Indication: GLIOBLASTOMA MULTIFORME
     Dosage: ; INDRP, ; PO,
     Dates: start: 20070118, end: 20070129
  6. COTRIM [Concomitant]
  7. GLYCEOL [Concomitant]
  8. LOXONIN [Concomitant]
  9. GASTER [Concomitant]
  10. GASTER D [Concomitant]
  11. SELBEX [Concomitant]

REACTIONS (13)
  - ALTERED STATE OF CONSCIOUSNESS [None]
  - BLOOD ALBUMIN DECREASED [None]
  - BLOOD CREATININE INCREASED [None]
  - BLOOD UREA INCREASED [None]
  - BLOOD URIC ACID INCREASED [None]
  - DEEP VEIN THROMBOSIS [None]
  - DISSEMINATED INTRAVASCULAR COAGULATION [None]
  - LYMPHOCYTE COUNT INCREASED [None]
  - MONOCYTE COUNT INCREASED [None]
  - PROTEIN TOTAL DECREASED [None]
  - PULMONARY EMBOLISM [None]
  - PULMONARY INFARCTION [None]
  - WHITE BLOOD CELL COUNT DECREASED [None]
